FAERS Safety Report 21955744 (Version 1)
Quarter: 2023Q1

REPORT INFORMATION
  Report Type: Spontaneous
  Country: US (occurrence: US)
  Receive Date: 20230206
  Receipt Date: 20230206
  Transmission Date: 20230418
  Serious: No
  Sender: FDA-Public Use
  Company Number: US-BRISTOL-MYERS SQUIBB COMPANY-2023-017102

PATIENT
  Age: 64 Year
  Sex: Female
  Weight: 62.59 kg

DRUGS (2)
  1. SOTYKTU [Suspect]
     Active Substance: DEUCRAVACITINIB
     Indication: Eczema
     Dosage: DOSE : 1 TABLET;     FREQ : EVERY DAY
     Route: 048
     Dates: start: 20230124
  2. SOTYKTU [Suspect]
     Active Substance: DEUCRAVACITINIB
     Indication: Hypersensitivity

REACTIONS (2)
  - Urinary tract infection [Unknown]
  - Off label use [Unknown]

NARRATIVE: CASE EVENT DATE: 20230125
